FAERS Safety Report 6301185-2 (Version None)
Quarter: 2009Q3

REPORT INFORMATION
  Report Type: 
  Country: None (occurrence: None)
  Receive Date: 20090806
  Receipt Date: 20090806
  Transmission Date: 20100115
  Serious: Yes (Other)
  Sender: FDA-Public Use
  Company Number: None

PATIENT
  Sex: Female
  Weight: 81.6475 kg

DRUGS (1)
  1. SULFASALAZINE [Suspect]
     Indication: COLITIS
     Dosage: 2 TABS 2XDAY ORAL
     Route: 048
     Dates: start: 20090720, end: 20090723

REACTIONS (1)
  - INSOMNIA [None]
